FAERS Safety Report 4985733-0 (Version None)
Quarter: 2006Q2

REPORT INFORMATION
  Report Type: 
  Country: None (occurrence: None)
  Receive Date: 20060421
  Receipt Date: 20060413
  Transmission Date: 20061013
  Serious: Yes (Hospitalization)
  Sender: FDA-Public Use
  Company Number: 200310596BCA

PATIENT
  Age: 74 Year
  Sex: Female

DRUGS (13)
  1. CIPRO [Suspect]
     Indication: URINARY TRACT INFECTION
     Dosage: 500 MG, TOTAL DAILY; ORAL
     Route: 048
     Dates: start: 20030720, end: 20030721
  2. RHYTHMODAN (DISOPYRAMIDE) [Suspect]
     Dosage: 250 MG, BID, ORAL
     Route: 048
     Dates: end: 20030721
  3. MS CONTIN [Concomitant]
  4. VERAPAMIL [Concomitant]
  5. DESSICATED THYROID [Concomitant]
  6. HYDROCHLOROTHIAZIDE [Concomitant]
  7. CALCIUM CARBONATE [Concomitant]
  8. DOCUSATE SODIUM [Concomitant]
  9. VITAMIN D [Concomitant]
  10. VITAMIN A [Concomitant]
  11. COD LIVER OIL [Concomitant]
  12. LECITHIN [Concomitant]
  13. ECHINACEA [Concomitant]

REACTIONS (9)
  - CONVULSION [None]
  - DEPRESSED LEVEL OF CONSCIOUSNESS [None]
  - EXTRASYSTOLES [None]
  - HYPOKALAEMIA [None]
  - LONG QT SYNDROME [None]
  - LOSS OF CONSCIOUSNESS [None]
  - PULSE ABSENT [None]
  - TORSADE DE POINTES [None]
  - VENTRICULAR TACHYCARDIA [None]
